FAERS Safety Report 5360745-6 (Version None)
Quarter: 2007Q2

REPORT INFORMATION
  Report Type: 
  Country: None (occurrence: None)
  Receive Date: 20070618
  Receipt Date: 20070613
  Transmission Date: 20071010
  Serious: Yes (Life-Threatening)
  Sender: FDA-Public Use
  Company Number: FR-ASTRAZENECA-2007CG00906

PATIENT
  Age: 21806 Day
  Sex: Male

DRUGS (4)
  1. NEXIUM [Suspect]
     Route: 048
     Dates: start: 20070303, end: 20070502
  2. SUTENT [Suspect]
     Route: 048
     Dates: start: 20070101, end: 20070128
  3. SUTENT [Suspect]
     Route: 048
     Dates: start: 20070201, end: 20070301
  4. SUTENT [Suspect]
     Route: 048
     Dates: start: 20070402, end: 20070427

REACTIONS (3)
  - NEUTROPENIA [None]
  - SEPSIS [None]
  - THROMBOCYTOPENIA [None]
